FAERS Safety Report 5087655-6 (Version None)
Quarter: 2006Q3

REPORT INFORMATION
  Report Type: 
  Country: None (occurrence: None)
  Receive Date: 20060727
  Receipt Date: 20060628
  Transmission Date: 20061208
  Serious: Yes (Other)
  Sender: FDA-Public Use
  Company Number: 2006046497

PATIENT
  Age: 44 Year
  Sex: Male
  Weight: 81.6475 kg

DRUGS (7)
  1. LYRICA [Suspect]
     Indication: NEUROPATHY
     Dosage: (75 MG, 1 IN 1 D), ORAL
     Route: 048
     Dates: start: 20060201
  2. NEURONTIN [Concomitant]
  3. TOPAMAX [Concomitant]
  4. VITAMINS [Concomitant]
  5. NIACIN [Concomitant]
  6. MOBIC [Concomitant]
  7. IMITREX [Concomitant]

REACTIONS (1)
  - PAIN [None]
